FAERS Safety Report 8774721 (Version 3)
Quarter: 2012Q4

REPORT INFORMATION
  Report Type: 
  Country: US (occurrence: US)
  Receive Date: 20120910
  Receipt Date: 20120926
  Transmission Date: 20130627
  Serious: No
  Sender: FDA-Public Use
  Company Number: US-PFIZER INC-2012219932

PATIENT
  Age: 75 Year
  Sex: Female

DRUGS (3)
  1. INDERAL [Suspect]
     Dosage: UNK
  2. INDERAL [Suspect]
     Dosage: 60 mg, a day
     Dates: start: 201207, end: 2012
  3. INDERAL [Suspect]
     Dosage: 30 mg, a day
     Dates: start: 2012

REACTIONS (4)
  - Heart rate decreased [Unknown]
  - Headache [Unknown]
  - Presyncope [Unknown]
  - Neck pain [Unknown]
